FAERS Safety Report 6758527-3 (Version None)
Quarter: 2010Q2

REPORT INFORMATION
  Report Type: 
  Country: None (occurrence: None)
  Receive Date: 20100607
  Receipt Date: 20100527
  Transmission Date: 20101027
  Serious: Yes (Hospitalization)
  Sender: FDA-Public Use
  Company Number: B0657475A

PATIENT
  Age: 72 Year
  Sex: Female

DRUGS (8)
  1. DEROXAT [Suspect]
     Route: 048
     Dates: start: 20040101, end: 20080101
  2. AGREAL [Suspect]
     Indication: MENOPAUSE
     Dosage: 100MG SEE DOSAGE TEXT
     Route: 048
     Dates: start: 20060315, end: 20070301
  3. DAFLON [Concomitant]
     Route: 065
  4. HERCEPTIN [Concomitant]
     Indication: BREAST CANCER
     Route: 065
  5. PRAVASTATIN SODIUM [Concomitant]
     Dosage: 10MG PER DAY
     Route: 048
  6. RIVOTRIL [Concomitant]
     Indication: BACK PAIN
     Dosage: .5MG PER DAY
     Route: 048
  7. FORLAX [Concomitant]
     Indication: CONSTIPATION
     Route: 048
  8. ZALDIAR [Concomitant]
     Indication: BACK PAIN
     Dosage: 3UNIT PER DAY
     Route: 048

REACTIONS (18)
  - AKINESIA [None]
  - BALANCE DISORDER [None]
  - BRADYKINESIA [None]
  - COGWHEEL RIGIDITY [None]
  - COMMUNICATION DISORDER [None]
  - DEPRESSION [None]
  - DRUG INTERACTION [None]
  - DYSKINESIA [None]
  - EXTRAPYRAMIDAL DISORDER [None]
  - MEMORY IMPAIRMENT [None]
  - MORBID THOUGHTS [None]
  - PARKINSONIAN GAIT [None]
  - PARKINSONISM [None]
  - SLEEP DISORDER [None]
  - TREMOR [None]
  - VOMITING [None]
  - WEIGHT DECREASED [None]
  - WITHDRAWAL SYNDROME [None]
